FAERS Safety Report 17414885 (Version 1)
Quarter: 2020Q1

REPORT INFORMATION
  Report Type: Spontaneous
  Country: US (occurrence: US)
  Receive Date: 20200213
  Receipt Date: 20200213
  Transmission Date: 20200409
  Serious: Yes (Hospitalization)
  Sender: FDA-Public Use
  Company Number: US-PFIZER INC-2020063097

PATIENT
  Age: 63 Year
  Sex: Female
  Weight: 57.6 kg

DRUGS (1)
  1. IBRANCE [Suspect]
     Active Substance: PALBOCICLIB
     Indication: BREAST CANCER
     Dosage: 125 MG, CYCLIC [DAYS 1-21 EVERY 28 DAYS]
     Route: 048
     Dates: start: 20200128

REACTIONS (4)
  - Dizziness [Unknown]
  - Lip swelling [Unknown]
  - Diplopia [Unknown]
  - Balance disorder [Unknown]

NARRATIVE: CASE EVENT DATE: 20200207
